FAERS Safety Report 11234125 (Version 1)
Quarter: 2015Q3

REPORT INFORMATION
  Report Type: Spontaneous
  Country: US (occurrence: US)
  Receive Date: 20150702
  Receipt Date: 20150702
  Transmission Date: 20151125
  Serious: No
  Sender: FDA-Public Use
  Company Number: US-PFIZER INC-2015215811

PATIENT
  Sex: Female

DRUGS (2)
  1. LYRICA [Suspect]
     Active Substance: PREGABALIN
     Indication: ALLERGIC GRANULOMATOUS ANGIITIS
     Dosage: 150 MG, 3X/DAY
     Route: 048
     Dates: start: 2009
  2. AMITRIPTYLINE [Suspect]
     Active Substance: AMITRIPTYLINE

REACTIONS (3)
  - Cognitive disorder [Unknown]
  - Memory impairment [Unknown]
  - Feeling abnormal [Unknown]

NARRATIVE: CASE EVENT DATE: 2009
